FAERS Safety Report 9242927 (Version 1)
Quarter: 2013Q2

REPORT INFORMATION
  Report Type: Spontaneous
  Country: US (occurrence: US)
  Receive Date: 20130419
  Receipt Date: 20130419
  Transmission Date: 20140414
  Serious: Yes (Other)
  Sender: FDA-Public Use
  Company Number: US-UCBSA-082514

PATIENT
  Age: 54 Year
  Sex: Female
  Weight: 90.7 kg

DRUGS (2)
  1. CIMZIA [Suspect]
     Indication: RHEUMATOID ARTHRITIS
     Dosage: TOTAL OF 4 DOSES
     Dates: start: 201301, end: 201303
  2. METHOTREXATE [Concomitant]
     Indication: RHEUMATOID ARTHRITIS

REACTIONS (2)
  - Meniscus injury [Recovered/Resolved]
  - Synovial cyst [Recovering/Resolving]
